FAERS Safety Report 11054845 (Version 1)
Quarter: 2015Q2

REPORT INFORMATION
  Report Type: Spontaneous
  Country: BR (occurrence: BR)
  Receive Date: 20150422
  Receipt Date: 20150422
  Transmission Date: 20150821
  Serious: Yes (Death)
  Sender: FDA-Public Use
  Company Number: BR-PFIZER INC-2015134411

PATIENT
  Age: 93 Year
  Sex: Female
  Weight: 80 kg

DRUGS (5)
  1. ANCORON [Concomitant]
     Active Substance: AMIODARONE HYDROCHLORIDE
     Indication: CARDIAC DISORDER
     Dosage: UNK
  2. MICARDIS HCT [Concomitant]
     Active Substance: HYDROCHLOROTHIAZIDE\TELMISARTAN
     Indication: HYPERTENSION
  3. XALATAN [Suspect]
     Active Substance: LATANOPROST
     Indication: CATARACT
  4. XALATAN [Suspect]
     Active Substance: LATANOPROST
     Indication: MYOPIA
  5. XALATAN [Suspect]
     Active Substance: LATANOPROST
     Indication: GLAUCOMA
     Dosage: 1 DROP IN EACH EYE, 1X/DAY
     Route: 047

REACTIONS (1)
  - Pneumonia [Fatal]
